FAERS Safety Report 5872922-6 (Version None)
Quarter: 2008Q3

REPORT INFORMATION
  Report Type: 
  Country: None (occurrence: None)
  Receive Date: 20080905
  Receipt Date: 20080826
  Transmission Date: 20090109
  Serious: Yes (Other)
  Sender: FDA-Public Use
  Company Number: TR-PFIZER INC-2008068427

PATIENT
  Age: 41 Year
  Sex: Male

DRUGS (5)
  1. METHYLPREDNISOLONE [Suspect]
     Indication: GLOMERULONEPHRITIS MEMBRANOPROLIFERATIVE
     Dosage: DAILY DOSE:48MG
     Route: 048
  2. FLUOCORTOLONE [Concomitant]
     Dosage: DAILY DOSE:75MG
  3. ACETYLSALICYLIC ACID SRT [Concomitant]
     Dosage: DAILY DOSE:100MG
  4. FUROSEMIDE [Concomitant]
     Dosage: DAILY DOSE:40MG
  5. QUINAPRIL [Concomitant]
     Dosage: DAILY DOSE:10MG

REACTIONS (2)
  - ATRIAL FIBRILLATION [None]
  - RETINOPATHY HYPERTENSIVE [None]
